FAERS Safety Report 22183740 (Version 2)
Quarter: 2023Q2

REPORT INFORMATION
  Report Type: Spontaneous
  Country: BR (occurrence: BR)
  Receive Date: 20230406
  Receipt Date: 20230420
  Transmission Date: 20230721
  Serious: Yes (Other)
  Sender: FDA-Public Use
  Company Number: BR-BIOMARINAP-BR-2023-149616

PATIENT

DRUGS (1)
  1. VIMIZIM [Suspect]
     Active Substance: ELOSULFASE ALFA
     Indication: Mucopolysaccharidosis IV
     Route: 065

REACTIONS (2)
  - Walking disability [Not Recovered/Not Resolved]
  - Pain [Not Recovered/Not Resolved]
